FAERS Safety Report 19455316 (Version 2)
Quarter: 2021Q3

REPORT INFORMATION
  Report Type: Report from Study
  Country: BE (occurrence: BE)
  Receive Date: 20210623
  Receipt Date: 20210702
  Transmission Date: 20211014
  Serious: Yes (Death, Hospitalization)
  Sender: FDA-Public Use
  Company Number: NVSC2021BE138279

PATIENT
  Sex: Male

DRUGS (3)
  1. SANDOSTATINE LAR [Suspect]
     Active Substance: OCTREOTIDE ACETATE
     Indication: DUMPING SYNDROME
     Dosage: 20 MG, Q3W
     Route: 030
  2. SANDOSTATINE LAR [Suspect]
     Active Substance: OCTREOTIDE ACETATE
  3. SANDOSTATINE LAR [Suspect]
     Active Substance: OCTREOTIDE ACETATE

REACTIONS (4)
  - Coronavirus infection [Not Recovered/Not Resolved]
  - Product use in unapproved indication [Unknown]
  - Death [Fatal]
  - Inappropriate schedule of product administration [Unknown]

NARRATIVE: CASE EVENT DATE: 20210625
